FAERS Safety Report 7435379-X (Version None)
Quarter: 2011Q2

REPORT INFORMATION
  Report Type: 
  Country: None (occurrence: None)
  Receive Date: 20110415
  Receipt Date: 20110407
  Transmission Date: 20111010
  Serious: Yes (Death, Life-Threatening, Hospitalization, Other)
  Sender: FDA-Public Use
  Company Number: 2008-178904-NL

PATIENT
  Age: 59 Year
  Sex: Male

DRUGS (8)
  1. XANOR [Concomitant]
  2. FENTANYL [Concomitant]
  3. REMERON [Suspect]
     Indication: DEPRESSION
     Dosage: 60 MG;QD;PO
     Route: 048
  4. AMITRIPTYLINE HYDROCHLORIDE [Suspect]
     Indication: DEPRESSION
     Dosage: 125 MG;QD;PO
     Route: 048
  5. BENDROFLUMETHIAZIDE [Concomitant]
  6. PARACET [Concomitant]
  7. ATENOLOL [Concomitant]
  8. ISOSORBIDE MONONITRATE [Concomitant]

REACTIONS (10)
  - DISSEMINATED INTRAVASCULAR COAGULATION [None]
  - SEROTONIN SYNDROME [None]
  - HEPATIC STEATOSIS [None]
  - HEPATIC FAILURE [None]
  - MULTIPLE DRUG OVERDOSE [None]
  - PLATELET COUNT DECREASED [None]
  - MULTI-ORGAN FAILURE [None]
  - CEREBELLAR ATROPHY [None]
  - METABOLIC ACIDOSIS [None]
  - DRUG INTERACTION [None]
